FAERS Safety Report 8799437 (Version 1)
Quarter: 2012Q4

REPORT INFORMATION
  Report Type: 
  Country: US (occurrence: US)
  Receive Date: 20120920
  Receipt Date: 20120920
  Transmission Date: 20130627
  Serious: Yes (Other)
  Sender: FDA-Public Use
  Company Number: US-009507513-1209USA003501

PATIENT
  Sex: Male

DRUGS (10)
  1. ISENTRESS [Suspect]
     Dosage: 800 mg, qd
     Route: 048
  2. ISENTRESS [Suspect]
     Dosage: 800 mg, qd
     Route: 048
  3. PREZISTA [Suspect]
     Dosage: 800 mg, qd
     Route: 048
  4. TRUVADA [Suspect]
     Dosage: 1UAX, qd
     Route: 048
  5. KALETRA [Suspect]
     Dosage: 1 UAX, qd
     Route: 048
  6. KALETRA [Suspect]
     Dosage: 41 UAX, qd
     Route: 048
  7. EPZICOM [Suspect]
     Dosage: 1 UAX, qd
     Route: 048
  8. NORVIR [Suspect]
     Dosage: 100 mg, qd
     Route: 048
  9. LEXIVA [Suspect]
     Dosage: 2800 mg, qd
     Route: 048
  10. BAKTAR [Concomitant]
     Dosage: 1 UAX, qd
     Route: 048

REACTIONS (4)
  - Lung infection [Unknown]
  - Disseminated tuberculosis [Unknown]
  - Immune reconstitution inflammatory syndrome [Unknown]
  - Immune reconstitution inflammatory syndrome [Unknown]
